FAERS Safety Report 6144462-0 (Version None)
Quarter: 2009Q2

REPORT INFORMATION
  Report Type: 
  Country: None (occurrence: None)
  Receive Date: 20090406
  Receipt Date: 20090326
  Transmission Date: 20091009
  Serious: Yes (Other)
  Sender: FDA-Public Use
  Company Number: GB-ROCHE-624593

PATIENT
  Age: 76 Year
  Sex: Female

DRUGS (7)
  1. BONIVA [Suspect]
     Indication: OSTEOPOROSIS
     Dosage: DRUG WITHDARWN, DOSE: 1 DF.
     Route: 048
     Dates: start: 20090130, end: 20090303
  2. ADCAL D3 [Concomitant]
     Indication: OSTEOPOROSIS
  3. ALENDRONIC ACID [Concomitant]
     Indication: OSTEOPOROSIS
  4. ASPIRIN [Concomitant]
  5. BENDROFLUMETHIAZIDE [Concomitant]
  6. COZAAR [Concomitant]
  7. LIPITOR [Concomitant]
     Route: 048

REACTIONS (4)
  - ABDOMINAL DISCOMFORT [None]
  - DIZZINESS [None]
  - DYSPNOEA [None]
  - FATIGUE [None]
